FAERS Safety Report 6902474-0 (Version None)
Quarter: 2010Q3

REPORT INFORMATION
  Report Type: 
  Country: None (occurrence: None)
  Receive Date: 20100802
  Receipt Date: 20100802
  Transmission Date: 20110219
  Serious: Yes (Hospitalization)
  Sender: FDA-Public Use
  Company Number: None

PATIENT
  Age: 62 Year
  Sex: Male
  Weight: 86.64 kg

DRUGS (1)
  1. SUNITINIB MALATE [Suspect]
     Indication: RENAL CELL CARCINOMA
     Dosage: 50 MG EVERY DAY PO
     Route: 048
     Dates: start: 20100707, end: 20100727

REACTIONS (5)
  - ABDOMINAL PAIN [None]
  - CELLULITIS [None]
  - NAUSEA [None]
  - RASH [None]
  - VOMITING [None]
